FAERS Safety Report 13527136 (Version 1)
Quarter: 2017Q2

REPORT INFORMATION
  Report Type: Spontaneous
  Country: US (occurrence: US)
  Receive Date: 20170509
  Receipt Date: 20170509
  Transmission Date: 20170830
  Serious: No
  Sender: FDA-Public Use
  Company Number: US-TEVA-762505USA

PATIENT
  Age: 4 Year
  Sex: Male
  Weight: 17.25 kg

DRUGS (10)
  1. PROAIR HFA [Suspect]
     Active Substance: ALBUTEROL SULFATE
     Indication: COUGH
     Dosage: TWO PUFFS EVERY FOUR HOURS
     Dates: start: 201611
  2. PREDNISONE. [Concomitant]
     Active Substance: PREDNISONE
     Indication: PYREXIA
  3. QVAR [Suspect]
     Active Substance: BECLOMETHASONE DIPROPIONATE
     Indication: BRONCHIAL HYPERREACTIVITY
     Dosage: TWO PUFFS IN THE MORNING AND EVENING
  4. PREDNISONE. [Concomitant]
     Active Substance: PREDNISONE
     Indication: COUGH
  5. QVAR [Suspect]
     Active Substance: BECLOMETHASONE DIPROPIONATE
     Indication: ASTHMA
  6. QVAR [Suspect]
     Active Substance: BECLOMETHASONE DIPROPIONATE
     Indication: HYPERSENSITIVITY
  7. PROAIR HFA [Suspect]
     Active Substance: ALBUTEROL SULFATE
     Indication: WHEEZING
  8. ALBUTEROL NEBULIZING SOLUTION [Concomitant]
  9. AMOXICILLIN. [Concomitant]
     Active Substance: AMOXICILLIN
     Indication: PYREXIA
  10. AMOXICILLIN. [Concomitant]
     Active Substance: AMOXICILLIN
     Indication: COUGH

REACTIONS (3)
  - Cough [Unknown]
  - Pyrexia [Unknown]
  - Drug prescribing error [Unknown]

NARRATIVE: CASE EVENT DATE: 20170415
